FAERS Safety Report 8131040-7 (Version None)
Quarter: 2012Q1

REPORT INFORMATION
  Report Type: 
  Country: None (occurrence: None)
  Receive Date: 20120208
  Receipt Date: 20120208
  Transmission Date: 20120608
  Serious: No
  Sender: FDA-Public Use
  Company Number: None

PATIENT
  Age: 59 Year
  Sex: Male
  Weight: 101.5 kg

DRUGS (1)
  1. PEGINTERFERON ALFA-2B [Suspect]
     Indication: HEPATITIS C
     Dosage: ML SQ
     Route: 058
     Dates: start: 20111021

REACTIONS (2)
  - HYPOTHYROIDISM [None]
  - BLOOD THYROID STIMULATING HORMONE INCREASED [None]
